FAERS Safety Report 26050717 (Version 1)
Quarter: 2025Q4

REPORT INFORMATION
  Report Type: Report from Study
  Country: US (occurrence: US)
  Receive Date: 20251116
  Receipt Date: 20251116
  Transmission Date: 20260118
  Serious: Yes (Death)
  Sender: BAUSCH AND LOMB
  Company Number: US-BAUSCHBL-2025BNL031849

PATIENT
  Age: 82 Year
  Sex: Female

DRUGS (2)
  1. MIEBO [Suspect]
     Active Substance: PERFLUOROHEXYLOCTANE
     Indication: Meibomian gland dysfunction
     Dosage: INSTILL 1 DROP INTO EACH EYE 4 TIMES DAILY (MUST SEE PACKAGE INSERT FOR ADMIN INSTRUCTIONS)
     Route: 047
     Dates: start: 20250419
  2. MIEBO [Suspect]
     Active Substance: PERFLUOROHEXYLOCTANE
     Indication: Product use in unapproved indication

REACTIONS (2)
  - Death [Fatal]
  - Product use in unapproved indication [Unknown]
